FAERS Safety Report 26107656 (Version 1)
Quarter: 2025Q4

REPORT INFORMATION
  Report Type: Spontaneous
  Country: US (occurrence: None)
  Receive Date: 20251126
  Receipt Date: 20251126
  Transmission Date: 20260117
  Serious: Yes (Death, Hospitalization, Other)
  Sender: FDA-CTU
  Company Number: None

PATIENT
  Age: 93 Year
  Sex: Female

DRUGS (1)
  1. LENALIDOMIDE [Suspect]
     Active Substance: LENALIDOMIDE
     Indication: Plasma cell myeloma
     Dosage: 2.5MG QD ORAL
     Route: 048
     Dates: start: 20190621, end: 20251122

REACTIONS (2)
  - Deep vein thrombosis [None]
  - Subarachnoid haemorrhage [None]

NARRATIVE: CASE EVENT DATE: 20251113
